FAERS Safety Report 13859684 (Version 1)
Quarter: 2017Q3

REPORT INFORMATION
  Report Type: Spontaneous
  Country: ES (occurrence: ES)
  Receive Date: 20170811
  Receipt Date: 20170811
  Transmission Date: 20171127
  Serious: Yes (Other)
  Sender: FDA-Public Use
  Company Number: ES-AMGEN-ESPSP2017082037

PATIENT
  Age: 10 Year
  Sex: Female

DRUGS (3)
  1. PROLIA [Suspect]
     Active Substance: DENOSUMAB
     Indication: OSTEOGENESIS IMPERFECTA
     Dosage: 1 MG/KG, UNK
     Route: 065
     Dates: start: 20170327
  2. CALCIUM [Concomitant]
     Active Substance: CALCIUM
     Dosage: 1000 MG, UNK
  3. VITAMIN D [Concomitant]
     Active Substance: CHOLECALCIFEROL
     Dosage: 500 IU, UNK

REACTIONS (7)
  - Scoliosis surgery [Unknown]
  - Humerus fracture [Unknown]
  - Bone operation [Unknown]
  - Off label use [Unknown]
  - Fall [Unknown]
  - Femur fracture [Unknown]
  - Keratoconus [Unknown]

NARRATIVE: CASE EVENT DATE: 2017
